FAERS Safety Report 21471117 (Version 3)
Quarter: 2022Q4

REPORT INFORMATION
  Report Type: Report from Study
  Country: US (occurrence: US)
  Receive Date: 20221018
  Receipt Date: 20221216
  Transmission Date: 20230113
  Serious: No
  Sender: FDA-Public Use
  Company Number: US-ABBVIE-4154520

PATIENT
  Sex: Female

DRUGS (3)
  1. IMBRUVICA [Suspect]
     Active Substance: IBRUTINIB
     Indication: Chronic lymphocytic leukaemia
     Dosage: LAST ADMINISTRATION DATE WAS 2022
     Route: 048
     Dates: start: 202207
  2. IMBRUVICA [Suspect]
     Active Substance: IBRUTINIB
     Indication: Chronic lymphocytic leukaemia
     Dosage: FIRST ADMINISTRATION DATE WAS 2022
     Route: 048
  3. MIRALAX [Concomitant]
     Active Substance: POLYETHYLENE GLYCOL 3350
     Indication: Product used for unknown indication

REACTIONS (11)
  - Tinnitus [Unknown]
  - Depressed mood [Unknown]
  - Muscle spasms [Unknown]
  - Dysstasia [Unknown]
  - Fatigue [Unknown]
  - Constipation [Unknown]
  - Blood urine present [Unknown]
  - Memory impairment [Unknown]
  - Headache [Unknown]
  - Diarrhoea [Unknown]
  - Vaginal prolapse [Unknown]
